FAERS Safety Report 6467453-9 (Version None)
Quarter: 2009Q4

REPORT INFORMATION
  Report Type: 
  Country: None (occurrence: None)
  Receive Date: 20091202
  Receipt Date: 20091201
  Transmission Date: 20100525
  Serious: Yes (Life-Threatening, Hospitalization, Disabling)
  Sender: FDA-Public Use
  Company Number: B0609987A

PATIENT
  Age: 37 Year
  Sex: Male

DRUGS (1)
  1. SEROXAT [Suspect]
     Indication: OBSESSIVE-COMPULSIVE DISORDER
     Dosage: 20MG PER DAY
     Route: 048
     Dates: start: 20091123, end: 20091124

REACTIONS (4)
  - HEAD INJURY [None]
  - INTENTIONAL SELF-INJURY [None]
  - MULTIPLE FRACTURES [None]
  - SUICIDE ATTEMPT [None]
